FAERS Safety Report 18451955 (Version 1)
Quarter: 2020Q4

REPORT INFORMATION
  Report Type: Spontaneous
  Country: US (occurrence: US)
  Receive Date: 20201102
  Receipt Date: 20201102
  Transmission Date: 20210114
  Serious: Yes (Hospitalization)
  Sender: FDA-Public Use
  Company Number: US-MYLANLABS-2020M1090641

PATIENT
  Age: 20 Year
  Sex: Male

DRUGS (6)
  1. SERTRALINE [Suspect]
     Active Substance: SERTRALINE HYDROCHLORIDE
     Indication: ANXIETY
     Route: 065
  2. PHENETHYLAMINE [Suspect]
     Active Substance: PHENETHYLAMINE
     Indication: MOOD ALTERED
     Dosage: 40 MILLIGRAM, QD
     Route: 065
  3. PERPHENAZINE. [Suspect]
     Active Substance: PERPHENAZINE
     Indication: ANXIETY
     Dosage: 2 MILLIGRAM
     Route: 065
  4. AMITRIPTYLINE [Suspect]
     Active Substance: AMITRIPTYLINE
     Indication: ANXIETY
     Dosage: 10 MILLIGRAM, QD
     Route: 065
  5. BUPROPION. [Suspect]
     Active Substance: BUPROPION
     Indication: ANXIETY
     Route: 065
  6. KRATOM [Suspect]
     Active Substance: HERBALS\MITRAGYNINE
     Indication: MOOD ALTERED
     Route: 065

REACTIONS (5)
  - Serotonin syndrome [Recovering/Resolving]
  - Rhabdomyolysis [Recovered/Resolved]
  - Metabolic acidosis [Recovered/Resolved]
  - Drug ineffective [Unknown]
  - Transaminases increased [Unknown]
